FAERS Safety Report 20780118 (Version 1)
Quarter: 2022Q2

REPORT INFORMATION
  Report Type: Spontaneous
  Country: US (occurrence: US)
  Receive Date: 20220503
  Receipt Date: 20220503
  Transmission Date: 20220721
  Serious: No
  Sender: FDA-Public Use
  Company Number: US-Teikoku Pharma USA-TPU2022-00450

PATIENT
  Age: 76 Year
  Sex: Female

DRUGS (1)
  1. LIDOCAINE PATCH [Suspect]
     Active Substance: LIDOCAINE
     Indication: Arthralgia
     Route: 061

REACTIONS (2)
  - Inability to afford medication [Unknown]
  - Prescription drug used without a prescription [Unknown]
